FAERS Safety Report 5326668-3 (Version None)
Quarter: 2007Q2

REPORT INFORMATION
  Report Type: 
  Country: None (occurrence: None)
  Receive Date: 20070516
  Receipt Date: 20070504
  Transmission Date: 20071010
  Serious: Yes (Other)
  Sender: FDA-Public Use
  Company Number: US-PFIZER INC-2006051914

PATIENT
  Sex: Male

DRUGS (9)
  1. VIAGRA [Suspect]
     Indication: ERECTILE DYSFUNCTION
     Dates: start: 19980701, end: 20010101
  2. CAVERJECT [Concomitant]
     Indication: ERECTILE DYSFUNCTION
     Dates: start: 19990101
  3. ZOCOR [Concomitant]
  4. PERCOCET [Concomitant]
     Dosage: TEXT:5/325
  5. PROZAC [Concomitant]
     Dates: start: 19980101
  6. TESTOSTERONE CIPIONATE [Concomitant]
  7. RABEPRAZOLE SODIUM [Concomitant]
     Dates: start: 19900101
  8. CENTRUM SILVER [Concomitant]
     Dates: start: 19850101
  9. METAMUCIL-2 [Concomitant]
     Dates: start: 19850101

REACTIONS (3)
  - BLINDNESS [None]
  - CATARACT [None]
  - OPTIC ISCHAEMIC NEUROPATHY [None]
